FAERS Safety Report 4874069-4 (Version None)
Quarter: 2006Q1

REPORT INFORMATION
  Report Type: 
  Country: None (occurrence: None)
  Receive Date: 20060104
  Receipt Date: 20051222
  Transmission Date: 20060701
  Serious: Yes (Hospitalization, Other)
  Sender: FDA-Public Use
  Company Number: 2005172549

PATIENT
  Age: 61 Year
  Sex: Female
  Weight: 84.369 kg

DRUGS (11)
  1. NEURONTIN [Suspect]
     Indication: NEUROPATHY
     Dosage: 2400- MG (600 MG, 4 IN 1 D)
  2. LYRICA [Suspect]
     Indication: NEUROPATHY
     Dosage: 50 MG
     Dates: start: 20051220, end: 20051220
  3. WARFARIN SODIUM [Suspect]
     Indication: THROMBOSIS
     Dates: start: 20050301
  4. NORVASC [Concomitant]
  5. KLOR-CON [Concomitant]
  6. FEMARA [Concomitant]
  7. PROTONIX [Concomitant]
  8. ASPIRIN [Concomitant]
  9. ARAVA [Concomitant]
  10. PROZAC [Concomitant]
  11. PREDNISONE [Concomitant]

REACTIONS (9)
  - CONDITION AGGRAVATED [None]
  - DRUG LEVEL DECREASED [None]
  - DRUG LEVEL INCREASED [None]
  - FEELING HOT [None]
  - INSOMNIA [None]
  - NEUROPATHY [None]
  - NIGHT SWEATS [None]
  - PULMONARY THROMBOSIS [None]
  - THROMBOSIS [None]
